FAERS Safety Report 24264364 (Version 2)
Quarter: 2024Q3

REPORT INFORMATION
  Report Type: Spontaneous
  Country: US (occurrence: US)
  Receive Date: 20240829
  Receipt Date: 20240829
  Transmission Date: 20241016
  Serious: Yes (Death, Hospitalization, Other)
  Sender: ASTELLAS
  Company Number: US-ASTELLAS-2024-AER-001717

PATIENT
  Sex: Male

DRUGS (1)
  1. ENFORTUMAB VEDOTIN [Suspect]
     Active Substance: ENFORTUMAB VEDOTIN
     Indication: Product used for unknown indication
     Dosage: ONE CYCLE OF ENFORTUMAB VEDOTIN
     Route: 065

REACTIONS (3)
  - Death [Fatal]
  - Rash [Unknown]
  - Stevens-Johnson syndrome [Unknown]
